FAERS Safety Report 8222520-4 (Version None)
Quarter: 2012Q1

REPORT INFORMATION
  Report Type: 
  Country: None (occurrence: None)
  Receive Date: 20120320
  Receipt Date: 20120313
  Transmission Date: 20120608
  Serious: Yes (Other)
  Sender: FDA-Public Use
  Company Number: US-UCBSA-029785

PATIENT
  Sex: Male

DRUGS (4)
  1. TYLENOL-ES [Concomitant]
     Indication: HEADACHE
     Route: 064
  2. FOLIC ACID [Concomitant]
     Indication: PREGNANCY
     Route: 064
  3. KEPPRA [Suspect]
     Indication: BRAIN NEOPLASM MALIGNANT
     Route: 064
     Dates: start: 20080101, end: 20090130
  4. MULTI-VITAMINS [Concomitant]
     Indication: PREGNANCY
     Route: 064
     Dates: start: 20070801

REACTIONS (3)
  - PREMATURE BABY [None]
  - FOETAL EXPOSURE DURING PREGNANCY [None]
  - SPEECH DISORDER DEVELOPMENTAL [None]
